FAERS Safety Report 14154991 (Version 3)
Quarter: 2017Q4

REPORT INFORMATION
  Report Type: Spontaneous
  Country: JP (occurrence: JP)
  Receive Date: 20171103
  Receipt Date: 20171228
  Transmission Date: 20180321
  Serious: Yes (Death, Hospitalization, Other)
  Sender: FDA-Public Use
  Company Number: JP-ASTRAZENECA-2017SF11496

PATIENT
  Age: 89 Year
  Sex: Male

DRUGS (1)
  1. ONGLYZA [Suspect]
     Active Substance: SAXAGLIPTIN HYDROCHLORIDE
     Indication: DIABETES MELLITUS
     Route: 048

REACTIONS (8)
  - Pneumonia [Unknown]
  - Hypernatraemia [Recovering/Resolving]
  - Acute coronary syndrome [Unknown]
  - Metabolic acidosis [Unknown]
  - Dehydration [Unknown]
  - Cachexia [Unknown]
  - Pancreatic carcinoma [Fatal]
  - Altered state of consciousness [Unknown]
